FAERS Safety Report 22383789 (Version 1)
Quarter: 2023Q2

REPORT INFORMATION
  Report Type: Spontaneous
  Country: US (occurrence: None)
  Receive Date: 20230526
  Receipt Date: 20230526
  Transmission Date: 20230721
  Serious: Yes (Hospitalization)
  Sender: FDA-Public Use
  Company Number: None

PATIENT
  Age: 69 Year
  Sex: Female
  Weight: 62.5 kg

DRUGS (12)
  1. MAVYRET [Suspect]
     Active Substance: GLECAPREVIR\PIBRENTASVIR
     Indication: Hepatitis C
     Dosage: OTHER QUANTITY : 3 TABLETS;?FREQUENCY : DAILY;?
     Route: 048
     Dates: start: 20230304
  2. FERROUS GLUCONATE [Concomitant]
     Active Substance: FERROUS GLUCONATE
  3. FOLIC ACID [Concomitant]
     Active Substance: FOLIC ACID
  4. REFRESH ARTFICIAL TEARS [Concomitant]
  5. VOLTAREN 1% GEL [Concomitant]
  6. PANTOPRAZOLE [Concomitant]
     Active Substance: PANTOPRAZOLE
  7. ACETAMINOPHEN [Concomitant]
     Active Substance: ACETAMINOPHEN
  8. DILTIAZEM [Concomitant]
     Active Substance: DILTIAZEM
  9. FLUTICASONE [Concomitant]
     Active Substance: FLUTICASONE
  10. LORATADINE [Concomitant]
     Active Substance: LORATADINE
  11. METHIMAZOLE [Concomitant]
     Active Substance: METHIMAZOLE
  12. VITAMIN C [Concomitant]
     Active Substance: ASCORBIC ACID

REACTIONS (1)
  - Cholecystitis [None]

NARRATIVE: CASE EVENT DATE: 20230523
